FAERS Safety Report 6557719-6 (Version None)
Quarter: 2010Q1

REPORT INFORMATION
  Report Type: 
  Country: None (occurrence: None)
  Receive Date: 20100129
  Receipt Date: 20100118
  Transmission Date: 20100710
  Serious: Yes (Hospitalization, Other)
  Sender: FDA-Public Use
  Company Number: IT-NOVOPROD-300600

PATIENT
  Sex: Male

DRUGS (6)
  1. NOVORAPID [Suspect]
     Indication: DIABETES MELLITUS
     Dosage: 19 U, QD
     Route: 058
     Dates: start: 20090101
  2. LANTUS [Suspect]
     Indication: DIABETES MELLITUS
     Dosage: 16 U, QD
     Route: 058
     Dates: start: 20090101
  3. LORTAAN [Concomitant]
     Indication: HYPERTENSION
     Dosage: 1 UNK, UNK
     Route: 048
     Dates: start: 20090101
  4. ASPIRIN [Concomitant]
     Indication: PROPHYLAXIS
     Dosage: 1 TAB, QD
     Route: 048
     Dates: start: 20090101
  5. TORVAST [Concomitant]
     Indication: DYSLIPIDAEMIA
     Dosage: 1 UNK, QD
     Route: 048
     Dates: start: 20090101
  6. TRIATEC                            /00885601/ [Concomitant]
     Indication: HYPERTENSION

REACTIONS (3)
  - CHEST INJURY [None]
  - FALL [None]
  - HYPOGLYCAEMIA [None]
